APPROVED DRUG PRODUCT: GLIPIZIDE AND METFORMIN HYDROCHLORIDE
Active Ingredient: GLIPIZIDE; METFORMIN HYDROCHLORIDE
Strength: 5MG;500MG
Dosage Form/Route: TABLET;ORAL
Application: A077620 | Product #003
Applicant: SUN PHARMACEUTICAL INDUSTRIES INC
Approved: Jan 11, 2008 | RLD: No | RS: No | Type: DISCN